FAERS Safety Report 13032826 (Version 5)
Quarter: 2018Q4

REPORT INFORMATION
  Report Type: Report from Study
  Country: None (occurrence: TH)
  Receive Date: 20161215
  Receipt Date: 20181019
  Transmission Date: 20190204
  Serious: Yes (Hospitalization)
  Sender: FDA-Public Use
  Company Number: TH-ABBVIE-16P-155-1806587-00

PATIENT
  Age: 68 Year
  Sex: Female
  Weight: 38 kg

DRUGS (2)
  1. DUODOPA [Suspect]
     Active Substance: CARBIDOPA\LEVODOPA
     Dosage: MORNING 7.0 (QD), CONTINUE 1.2 ML/HR, EXTRA (PRN) 1.05
     Route: 050
  2. DUODOPA [Suspect]
     Active Substance: CARBIDOPA\LEVODOPA
     Indication: PARKINSON^S DISEASE
     Dosage: MORNING 7.0 (QD), CONTINUE 1.0 ML/HR, EXTRA (PRN) 1.05
     Route: 050
     Dates: start: 20100319

REACTIONS (3)
  - Head injury [Recovered/Resolved with Sequelae]
  - Facial bones fracture [Recovered/Resolved with Sequelae]
  - Fall [Recovered/Resolved with Sequelae]

NARRATIVE: CASE EVENT DATE: 20161206
